FAERS Safety Report 9147475 (Version 1)
Quarter: 2013Q1

REPORT INFORMATION
  Report Type: Spontaneous
  Country: US (occurrence: None)
  Receive Date: 20130212
  Receipt Date: 20130212
  Transmission Date: 20140127
  Serious: Yes (Death)
  Sender: FDA-Public Use
  Company Number: SYM-2013-00432

PATIENT
  Age: 74 Year
  Sex: Female

DRUGS (2)
  1. VISUDYNE [Suspect]
     Indication: METASTASIS
  2. PHOTODYNAMIC THERAPY (OTHER THERAPEUTIC PRODUCTS) [Concomitant]

REACTIONS (2)
  - Retinal haemorrhage [None]
  - Metastasis [None]
